FAERS Safety Report 16984528 (Version 1)
Quarter: 2019Q4

REPORT INFORMATION
  Report Type: Spontaneous
  Country: US (occurrence: US)
  Receive Date: 20191101
  Receipt Date: 20191101
  Transmission Date: 20200122
  Serious: No
  Sender: FDA-Public Use
  Company Number: US-PERRIGO-18US015099

PATIENT
  Sex: Female
  Weight: 46.71 kg

DRUGS (5)
  1. FAMOTIDINE. [Suspect]
     Active Substance: FAMOTIDINE
     Indication: GASTROOESOPHAGEAL REFLUX DISEASE
     Dosage: 20 MG, BID
     Route: 048
     Dates: start: 201805, end: 2018
  2. PANTOPRAZOLE [Concomitant]
     Active Substance: PANTOPRAZOLE
     Indication: GASTROOESOPHAGEAL REFLUX DISEASE
     Dosage: UNK
     Route: 048
     Dates: start: 201805
  3. FAMOTIDINE. [Suspect]
     Active Substance: FAMOTIDINE
     Dosage: 20 MG, BID
     Route: 048
     Dates: start: 2018, end: 201812
  4. FAMOTIDINE. [Suspect]
     Active Substance: FAMOTIDINE
     Dosage: 20 MG, BID
     Dates: start: 201812, end: 201812
  5. FAMOTIDINE. [Suspect]
     Active Substance: FAMOTIDINE
     Dosage: 20 MG, BID
     Route: 048
     Dates: start: 2018, end: 2018

REACTIONS (3)
  - Incorrect product administration duration [Not Recovered/Not Resolved]
  - Contraindicated product administered [Not Recovered/Not Resolved]
  - Therapeutic product effect variable [Unknown]

NARRATIVE: CASE EVENT DATE: 2018
